FAERS Safety Report 6417773-9 (Version None)
Quarter: 2009Q4

REPORT INFORMATION
  Report Type: 
  Country: None (occurrence: None)
  Receive Date: 20091027
  Receipt Date: 20091027
  Transmission Date: 20100525
  Serious: No
  Sender: FDA-Public Use
  Company Number: None

PATIENT
  Age: 64 Year
  Sex: Male
  Weight: 97.5 kg

DRUGS (4)
  1. HEPARIN [Suspect]
     Indication: ATRIAL FIBRILLATION
     Dosage: 900 UNITS/HR
     Dates: start: 20090915
  2. DILTIAZEM [Concomitant]
  3. WARFARIN SODIUM [Concomitant]
  4. CHLORAZEPATE [Concomitant]

REACTIONS (2)
  - HAEMORRHAGE [None]
  - VESSEL PERFORATION [None]
